FAERS Safety Report 8050746-1 (Version None)
Quarter: 2012Q1

REPORT INFORMATION
  Report Type: 
  Country: None (occurrence: None)
  Receive Date: 20120117
  Receipt Date: 20120117
  Transmission Date: 20120608
  Serious: Yes (Life-Threatening)
  Sender: FDA-Public Use
  Company Number: None

PATIENT
  Age: 62 Year
  Sex: Male
  Weight: 86.182 kg

DRUGS (1)
  1. VITAMIN D [Suspect]
     Dosage: 3,000 I.U.
     Route: 048
     Dates: start: 20110101, end: 20120101

REACTIONS (2)
  - ARRHYTHMIA [None]
  - OVERDOSE [None]
